FAERS Safety Report 17354769 (Version 1)
Quarter: 2020Q1

REPORT INFORMATION
  Report Type: Spontaneous
  Country: US (occurrence: US)
  Receive Date: 20200116
  Receipt Date: 20200116
  Transmission Date: 20200409
  Serious: Yes (Hospitalization)
  Sender: FDA-Public Use
  Company Number: None

PATIENT
  Age: 61 Year
  Sex: Female

DRUGS (8)
  1. EVAMIST [Concomitant]
     Active Substance: ESTRADIOL
  2. VITAMIN D3 [Concomitant]
     Active Substance: CHOLECALCIFEROL
  3. MODAFINIL. [Concomitant]
     Active Substance: MODAFINIL
  4. TIMOLOL. [Concomitant]
     Active Substance: TIMOLOL
  5. RESTASIS [Concomitant]
     Active Substance: CYCLOSPORINE
  6. OMPERAZOLE [Concomitant]
     Active Substance: OMEPRAZOLE
  7. OCREVUS [Suspect]
     Active Substance: OCRELIZUMAB
     Indication: MULTIPLE SCLEROSIS
  8. AMITRIPTYLINE [Concomitant]
     Active Substance: AMITRIPTYLINE

REACTIONS (4)
  - Chills [None]
  - Vomiting [None]
  - Infusion related reaction [None]
  - Pyrexia [None]
